FAERS Safety Report 9856125 (Version 1)
Quarter: 2014Q1

REPORT INFORMATION
  Report Type: Report from Study
  Country: US (occurrence: US)
  Receive Date: 20140130
  Receipt Date: 20140130
  Transmission Date: 20141002
  Serious: Yes (Hospitalization, Other)
  Sender: FDA-Public Use
  Company Number: PHEH2014US001918

PATIENT
  Age: 72 Year
  Sex: Female

DRUGS (1)
  1. SANDOSTATIN LAR DEPOT [Suspect]
     Dosage: 20 MG, UNK

REACTIONS (4)
  - Intestinal ischaemia [Unknown]
  - Short-bowel syndrome [Unknown]
  - Diarrhoea [Unknown]
  - Weight decreased [Unknown]
